FAERS Safety Report 5380786-2 (Version None)
Quarter: 2007Q3

REPORT INFORMATION
  Report Type: 
  Country: None (occurrence: None)
  Receive Date: 20070706
  Receipt Date: 20070627
  Transmission Date: 20080115
  Serious: Yes (Other)
  Sender: FDA-Public Use
  Company Number: B0476986A

PATIENT
  Sex: Male

DRUGS (4)
  1. REQUIP [Suspect]
     Indication: PARKINSON'S DISEASE
     Route: 048
  2. DOMPERIDONE [Concomitant]
  3. STALEVO 100 [Concomitant]
  4. NEUPRO [Concomitant]
     Route: 065

REACTIONS (5)
  - DYSKINESIA [None]
  - HALLUCINATION [None]
  - MENTAL DISORDER [None]
  - PARANOIA [None]
  - PATHOLOGICAL GAMBLING [None]
